FAERS Safety Report 17368992 (Version 2)
Quarter: 2020Q1

REPORT INFORMATION
  Report Type: Spontaneous
  Country: US (occurrence: US)
  Receive Date: 20200204
  Receipt Date: 20200221
  Transmission Date: 20200409
  Serious: Yes (Death)
  Sender: FDA-Public Use
  Company Number: US-ALLERGAN-2003921US

PATIENT
  Sex: Female

DRUGS (4)
  1. VRAYLAR [Suspect]
     Active Substance: CARIPRAZINE
     Indication: BIPOLAR I DISORDER
     Dosage: 4.5 MG, QD
     Dates: start: 20191220
  2. XARELTO [Concomitant]
     Active Substance: RIVAROXABAN
     Indication: COAGULOPATHY
  3. VRAYLAR [Suspect]
     Active Substance: CARIPRAZINE
     Dosage: 3 MG
  4. XARELTO [Concomitant]
     Active Substance: RIVAROXABAN
     Indication: EMBOLISM VENOUS

REACTIONS (2)
  - Myocardial infarction [Fatal]
  - Cerebrovascular accident [Fatal]
